FAERS Safety Report 26132220 (Version 1)
Quarter: 2025Q4

REPORT INFORMATION
  Report Type: Spontaneous
  Country: US (occurrence: None)
  Receive Date: 20251205
  Receipt Date: 20251205
  Transmission Date: 20260118
  Serious: Yes (Hospitalization)
  Sender: FDA-CTU
  Company Number: None

PATIENT
  Sex: Male

DRUGS (1)
  1. LENALIDOMIDE [Suspect]
     Active Substance: LENALIDOMIDE
     Indication: Anaemia
     Dosage: FREQUENCY : DAILY;
     Route: 048
     Dates: start: 20251017

REACTIONS (5)
  - Dehydration [None]
  - Fatigue [None]
  - Haemoglobin decreased [None]
  - Yellow skin [None]
  - Asthenia [None]
